FAERS Safety Report 13634339 (Version 3)
Quarter: 2017Q3

REPORT INFORMATION
  Report Type: Report from Study
  Country: DE (occurrence: DE)
  Receive Date: 20170609
  Receipt Date: 20170919
  Transmission Date: 20171127
  Serious: Yes (Hospitalization)
  Sender: FDA-Public Use
  Company Number: DE-ROCHE-1935505

PATIENT
  Age: 79 Year
  Sex: Female
  Weight: 58 kg

DRUGS (9)
  1. TRASTUZUMAB. [Suspect]
     Active Substance: TRASTUZUMAB
     Indication: BREAST CANCER
     Route: 042
     Dates: start: 20160531, end: 20160531
  2. DOCETAXEL. [Concomitant]
     Active Substance: DOCETAXEL
     Indication: BREAST CANCER
     Route: 042
     Dates: start: 20160531
  3. PERTUZUMAB. [Suspect]
     Active Substance: PERTUZUMAB
     Route: 042
     Dates: start: 20160621
  4. TRASTUZUMAB. [Suspect]
     Active Substance: TRASTUZUMAB
     Route: 042
     Dates: start: 20160621
  5. DEXTROMETHORPHAN [Concomitant]
     Active Substance: DEXTROMETHORPHAN
     Dosage: ON DAY 2 AND 3 OF CYCLE
     Route: 048
     Dates: start: 20160601, end: 20160915
  6. MCP [Concomitant]
     Active Substance: METOCLOPRAMIDE HYDROCHLORIDE
     Indication: NAUSEA
     Route: 048
     Dates: start: 20160531, end: 20160913
  7. DEXTROMETHORPHAN [Concomitant]
     Active Substance: DEXTROMETHORPHAN
     Dosage: ON DAY 1 OF CYCLE
     Route: 042
     Dates: start: 20160531, end: 20160913
  8. PERTUZUMAB. [Suspect]
     Active Substance: PERTUZUMAB
     Indication: BREAST CANCER
     Route: 042
     Dates: start: 20160531, end: 20160531
  9. ALOXI [Concomitant]
     Active Substance: PALONOSETRON HYDROCHLORIDE
     Indication: NAUSEA
     Dosage: GIVEN ON DAY 1 OF CYCLE
     Route: 042
     Dates: start: 20160531, end: 20160913

REACTIONS (2)
  - Bronchitis viral [Recovered/Resolved]
  - Erysipelas [Recovered/Resolved]

NARRATIVE: CASE EVENT DATE: 20170513
